FAERS Safety Report 25452265 (Version 1)
Quarter: 2025Q2

REPORT INFORMATION
  Report Type: Spontaneous
  Country: US (occurrence: US)
  Receive Date: 20250618
  Receipt Date: 20250618
  Transmission Date: 20250716
  Serious: No
  Sender: JOHNSON AND JOHNSON
  Company Number: US-JNJFOC-20250620441

PATIENT

DRUGS (1)
  1. LAZCLUZE [Suspect]
     Active Substance: LAZERTINIB
     Indication: Non-small cell lung cancer
     Dosage: 240 MG DAILY, FIRST DOSE AT 6:30A.M. THEN SECOND DOSE AT 6:30 PM
     Route: 048

REACTIONS (1)
  - Off label use [Unknown]
